FAERS Safety Report 22020876 (Version 1)
Quarter: 2023Q1

REPORT INFORMATION
  Report Type: Spontaneous
  Country: US (occurrence: None)
  Receive Date: 20230217
  Receipt Date: 20230217
  Transmission Date: 20230417
  Serious: Yes (Other)
  Sender: FDA-Public Use
  Company Number: None

PATIENT
  Age: 65 Year
  Sex: Female

DRUGS (11)
  1. DALFAMPRIDINE [Suspect]
     Active Substance: DALFAMPRIDINE
     Indication: Multiple sclerosis
     Dosage: FREQUENCY : TWICE A DAY;?
     Route: 048
     Dates: start: 20230104, end: 20230217
  2. AMITRIPTYLINE [Concomitant]
     Active Substance: AMITRIPTYLINE
  3. Benztropine 0.5mg Tablets [Concomitant]
  4. Creon 36000 Unit Capsules [Concomitant]
  5. Depakote 125mg DR Tablets [Concomitant]
  6. Haldol 2mg Tablets [Concomitant]
  7. LATANOPROST [Concomitant]
     Active Substance: LATANOPROST
  8. LISINOPRIL [Concomitant]
     Active Substance: LISINOPRIL
  9. LORAZEPAM [Concomitant]
     Active Substance: LORAZEPAM
  10. Ocrevus 300/10ml Inject, 10ml [Concomitant]
  11. Vitamin D 1,000 IU Softgels [Concomitant]

REACTIONS (2)
  - Cystitis [None]
  - Therapy cessation [None]

NARRATIVE: CASE EVENT DATE: 20230217
